FAERS Safety Report 7433169-5 (Version None)
Quarter: 2011Q2

REPORT INFORMATION
  Report Type: 
  Country: None (occurrence: None)
  Receive Date: 20110422
  Receipt Date: 20110415
  Transmission Date: 20111010
  Serious: Yes (Other)
  Sender: FDA-Public Use
  Company Number: A0923202A

PATIENT
  Sex: Female

DRUGS (1)
  1. ARZERRA [Suspect]
     Dosage: 2000MG UNKNOWN
     Route: 042
     Dates: start: 20110330

REACTIONS (2)
  - BALANCE DISORDER [None]
  - HYPOAESTHESIA [None]
